FAERS Safety Report 6087126-4 (Version None)
Quarter: 2009Q1

REPORT INFORMATION
  Report Type: 
  Country: None (occurrence: None)
  Receive Date: 20090223
  Receipt Date: 20090213
  Transmission Date: 20090719
  Serious: Yes (Life-Threatening, Hospitalization, Other)
  Sender: FDA-Public Use
  Company Number: GB-ABBOTT-06P-167-0342095-00

PATIENT
  Sex: Male
  Weight: 71 kg

DRUGS (10)
  1. RITONAVIR SOFT GELATIN CAPSULES [Suspect]
     Indication: HIV INFECTION
     Route: 048
     Dates: start: 20050801, end: 20060609
  2. TENOFOVIR [Suspect]
     Indication: HIV INFECTION
     Route: 048
     Dates: start: 20050801, end: 20060609
  3. VIDEX [Suspect]
     Indication: HIV INFECTION
     Route: 048
     Dates: start: 20050801, end: 20060610
  4. REYATAZ [Suspect]
     Indication: HIV INFECTION
     Route: 048
     Dates: start: 20050801, end: 20060609
  5. SEPTRIN [Concomitant]
     Indication: DRUG USE FOR UNKNOWN INDICATION
     Route: 048
     Dates: start: 20050301
  6. ZIDOVUDINE [Concomitant]
     Indication: DRUG USE FOR UNKNOWN INDICATION
  7. HERBAL SUPPLEMENTS [Concomitant]
     Indication: DRUG USE FOR UNKNOWN INDICATION
  8. CREATINE POWDER SUPPLEMENT [Concomitant]
     Indication: DRUG USE FOR UNKNOWN INDICATION
  9. CREATINE MONOHYDRATE [Concomitant]
     Indication: DRUG USE FOR UNKNOWN INDICATION
  10. BACTRIM [Concomitant]
     Indication: DRUG USE FOR UNKNOWN INDICATION
     Dates: start: 20050301

REACTIONS (9)
  - ALANINE AMINOTRANSFERASE INCREASED [None]
  - ASPARTATE AMINOTRANSFERASE INCREASED [None]
  - BLOOD ANTIDIURETIC HORMONE INCREASED [None]
  - BLOOD CREATINE PHOSPHOKINASE INCREASED [None]
  - MOBILITY DECREASED [None]
  - MYALGIA [None]
  - MYOGLOBIN BLOOD INCREASED [None]
  - MYOSITIS [None]
  - PAIN IN EXTREMITY [None]
